FAERS Safety Report 5850751-7 (Version None)
Quarter: 2008Q3

REPORT INFORMATION
  Report Type: 
  Country: None (occurrence: None)
  Receive Date: 20080820
  Receipt Date: 20080812
  Transmission Date: 20090109
  Serious: Yes (Other)
  Sender: FDA-Public Use
  Company Number: US-ROCHE-571454

PATIENT
  Age: 55 Year
  Sex: Male

DRUGS (2)
  1. XELODA [Suspect]
     Indication: DRUG USE FOR UNKNOWN INDICATION
     Dosage: FOR TWO WEEKS (14 DAYS OUT OF 21)
     Route: 065
  2. AVASTIN [Concomitant]

REACTIONS (1)
  - RETINAL DISORDER [None]
